FAERS Safety Report 12708855 (Version 1)
Quarter: 2016Q3

REPORT INFORMATION
  Report Type: Spontaneous
  Country: US (occurrence: US)
  Receive Date: 20160901
  Receipt Date: 20160901
  Transmission Date: 20161109
  Serious: No
  Sender: FDA-Public Use
  Company Number: US-JAZZ-2016-US-008175

PATIENT
  Age: 24 Year
  Sex: Female
  Weight: 45.35 kg

DRUGS (25)
  1. CALCIUM CARBONATE. [Concomitant]
     Active Substance: CALCIUM CARBONATE
  2. COCONUT OIL [Concomitant]
     Active Substance: COCONUT OIL
  3. VITAMIN B COMPLEX [Concomitant]
     Active Substance: CYANOCOBALAMIN\DEXPANTHENOL\NIACINAMIDE\PYRIDOXINE HYDROCHLORIDE\RIBOFLAVIN 5^-PHOSPHATE SODIUM\THIAMINE HYDROCHLORIDE\VITAMIN B COMPLEX
  4. XYREM [Suspect]
     Active Substance: SODIUM OXYBATE
     Indication: CATAPLEXY
     Dosage: 3 G, BID
     Route: 048
     Dates: start: 201604, end: 2016
  5. FISH OIL CONCENTRATE [Concomitant]
  6. SUDAFED PE CONGESTION [Concomitant]
     Active Substance: PHENYLEPHRINE HYDROCHLORIDE
  7. VITAMIN C [Concomitant]
     Active Substance: ASCORBIC ACID
  8. GLUCOSAMINE SULFATE [Concomitant]
     Active Substance: GLUCOSAMINE SULFATE
  9. ZINC GLUCONATE [Concomitant]
     Active Substance: ZINC GLUCONATE
  10. IRON [Concomitant]
     Active Substance: IRON
  11. DOXYCYCLINE. [Concomitant]
     Active Substance: DOXYCYCLINE
  12. BIOTIN [Concomitant]
     Active Substance: BIOTIN
  13. XYREM [Suspect]
     Active Substance: SODIUM OXYBATE
     Dosage: 3 G, FIRST DOSE
     Route: 048
     Dates: start: 2016
  14. CLARITIN [Concomitant]
     Active Substance: LORATADINE
  15. DOXYCYCLINE HYCLATE. [Concomitant]
     Active Substance: DOXYCYCLINE HYCLATE
  16. JUICE PLUS [Concomitant]
     Active Substance: DIETARY SUPPLEMENT
  17. MODAFINIL. [Concomitant]
     Active Substance: MODAFINIL
  18. MULTIVITAMINS [Concomitant]
     Active Substance: VITAMINS
  19. PROBIOTIC FORMULA [Concomitant]
  20. TURMERIC [Concomitant]
     Active Substance: TURMERIC
  21. PRENATAL VITAMINS [Concomitant]
     Active Substance: VITAMINS
  22. XYREM [Suspect]
     Active Substance: SODIUM OXYBATE
     Indication: NARCOLEPSY
     Dosage: 2.25 G, BID
     Route: 048
     Dates: start: 201604, end: 201604
  23. XYREM [Suspect]
     Active Substance: SODIUM OXYBATE
     Dosage: 2.75 G, SECOND DOSE
     Route: 048
     Dates: start: 2016
  24. CHELATED MAGNESIUM [Concomitant]
  25. SUDAFED 24 HOUR ER [Concomitant]

REACTIONS (7)
  - Unevaluable event [Unknown]
  - Decreased appetite [Unknown]
  - Depression [Unknown]
  - Feeling hot [Unknown]
  - Emotional disorder [Unknown]
  - Dyspnoea [Unknown]
  - Hyperhidrosis [Unknown]

NARRATIVE: CASE EVENT DATE: 2016
